FAERS Safety Report 5177762-1 (Version None)
Quarter: 2006Q4

REPORT INFORMATION
  Report Type: 
  Country: None (occurrence: None)
  Receive Date: 20061208
  Receipt Date: 20061123
  Transmission Date: 20070319
  Serious: Yes (Death)
  Sender: FDA-Public Use
  Company Number: 233017

PATIENT
  Age: 76 Year
  Sex: Male

DRUGS (7)
  1. AVASTIN [Suspect]
     Indication: MACULAR DEGENERATION
     Dosage: 0.04 ML, UNK, INTRAVITREAL
     Dates: start: 20061008, end: 20061008
  2. COZAAR COMP FORTE (HYDROCHLOROTHIAZIDE, LOSARTAN POTASSIUM) [Concomitant]
  3. KENALOG [Concomitant]
  4. VERTEPORFIN (VERTEPORFIN) [Concomitant]
  5. METOPROLOL SUCCINATE [Concomitant]
  6. MAGNYL (ASPIRIN, MAGNESIUM OXIDE, SODIUM BICARBONATE) [Concomitant]
  7. CASODEX [Concomitant]

REACTIONS (2)
  - AORTIC DISSECTION [None]
  - CARDIOGENIC SHOCK [None]
